FAERS Safety Report 19514111 (Version 1)
Quarter: 2021Q3

REPORT INFORMATION
  Report Type: Report from Study
  Country: US (occurrence: US)
  Receive Date: 20210710
  Receipt Date: 20210710
  Transmission Date: 20211014
  Serious: No
  Sender: FDA-Public Use
  Company Number: NVSC2021US146652

PATIENT
  Sex: Female

DRUGS (1)
  1. COSENTYX [Suspect]
     Active Substance: SECUKINUMAB
     Indication: JOINT SWELLING
     Dosage: 150 MG, QW
     Route: 058

REACTIONS (2)
  - Lip swelling [Unknown]
  - Swollen tongue [Unknown]
